FAERS Safety Report 10275051 (Version 1)
Quarter: 2014Q3

REPORT INFORMATION
  Report Type: Spontaneous
  Country: US (occurrence: US)
  Receive Date: 20140703
  Receipt Date: 20140703
  Transmission Date: 20150326
  Serious: No
  Sender: FDA-Public Use
  Company Number: US-B.I. PHARMACEUTICALS,INC./RIDGEFIELD-2014-BI-29100BP

PATIENT
  Age: 75 Year
  Sex: Male

DRUGS (5)
  1. SIMVASTATIN. [Suspect]
     Active Substance: SIMVASTATIN
     Indication: BLOOD CHOLESTEROL INCREASED
     Route: 065
  2. KROGER SALINE [Concomitant]
     Dosage: FORMULATION:SPRAY
     Route: 065
  3. 4 WAY SALINE MOISTURIZING MIST [Suspect]
     Active Substance: SODIUM CHLORIDE
     Indication: SINUS CONGESTION
     Dosage: FORMULATION: NASAL SPRAY
     Route: 045
  4. 4 WAY UNKNOWN [Suspect]
     Active Substance: XYLOMETAZOLINE HYDROCHLORIDE
     Indication: PRODUCT USED FOR UNKNOWN INDICATION
     Route: 065
  5. MICARDIS [Suspect]
     Active Substance: TELMISARTAN
     Indication: HYPERTENSION
     Route: 065

REACTIONS (5)
  - Blood cholesterol increased [Recovered/Resolved]
  - Cough [Not Recovered/Not Resolved]
  - Nasopharyngitis [Recovered/Resolved]
  - Expired product administered [Unknown]
  - Increased upper airway secretion [Recovered/Resolved]
